FAERS Safety Report 14157518 (Version 4)
Quarter: 2018Q1

REPORT INFORMATION
  Report Type: Report from Study
  Country: ES (occurrence: ES)
  Receive Date: 20171103
  Receipt Date: 20180309
  Transmission Date: 20180508
  Serious: Yes (Death, Hospitalization)
  Sender: FDA-Public Use
  Company Number: PHHO2017ES012873

PATIENT
  Age: 66 Year
  Sex: Female
  Weight: 55 kg

DRUGS (2)
  1. TRAMETINIB [Suspect]
     Active Substance: TRAMETINIB
     Indication: NON-SMALL CELL LUNG CANCER
     Dosage: 1 MG, QD
     Route: 048
     Dates: start: 20170713
  2. PDR001 [Suspect]
     Active Substance: INVESTIGATIONAL PRODUCT
     Indication: NON-SMALL CELL LUNG CANCER
     Dosage: 400 MG, QW4
     Route: 042
     Dates: start: 20170713

REACTIONS (1)
  - Dyspnoea [Fatal]

NARRATIVE: CASE EVENT DATE: 20170909
